FAERS Safety Report 4598428-2 (Version None)
Quarter: 2005Q1

REPORT INFORMATION
  Report Type: 
  Country: None (occurrence: None)
  Receive Date: 20050304
  Receipt Date: 20050224
  Transmission Date: 20050727
  Serious: Yes (Hospitalization, Disabling)
  Sender: FDA-Public Use
  Company Number: US-ABBOTT-05P-163-0292079-00

PATIENT
  Age: 37 Year
  Sex: Female

DRUGS (2)
  1. KALETRA [Suspect]
     Indication: HIV INFECTION
     Dates: start: 20040515
  2. TRUVADA [Suspect]
     Indication: HIV INFECTION
     Dates: start: 20041014, end: 20041220

REACTIONS (3)
  - ACUTE PSYCHOSIS [None]
  - HEARING IMPAIRED [None]
  - VISUAL DISTURBANCE [None]
